FAERS Safety Report 6135619-3 (Version None)
Quarter: 2009Q1

REPORT INFORMATION
  Report Type: 
  Country: None (occurrence: None)
  Receive Date: 20090327
  Receipt Date: 20080912
  Transmission Date: 20090719
  Serious: No
  Sender: FDA-Public Use
  Company Number: US-ASTRAZENECA-2006UW10420

PATIENT
  Age: 76 Year
  Sex: Male
  Weight: 74.8 kg

DRUGS (4)
  1. ZESTRIL [Suspect]
     Indication: HYPERTENSION
     Route: 048
     Dates: start: 20030101
  2. ZESTRIL [Suspect]
     Route: 048
     Dates: start: 19960101, end: 20030101
  3. GLUCOTROL XL [Concomitant]
  4. HYDROCHLOROTHIAZIDE [Concomitant]

REACTIONS (3)
  - HEART RATE DECREASED [None]
  - LIP SWELLING [None]
  - SWELLING FACE [None]
